FAERS Safety Report 7559448-9 (Version None)
Quarter: 2011Q2

REPORT INFORMATION
  Report Type: 
  Country: None (occurrence: None)
  Receive Date: 20110621
  Receipt Date: 20110613
  Transmission Date: 20111010
  Serious: Yes (Hospitalization)
  Sender: FDA-Public Use
  Company Number: CN-BRISTOL-MYERS SQUIBB COMPANY-15441512

PATIENT
  Age: 79 Year
  Sex: Male

DRUGS (4)
  1. ASPIRIN [Concomitant]
     Dates: start: 20090101
  2. WARFARIN SODIUM [Suspect]
     Indication: THROMBOSIS PROPHYLAXIS
     Dosage: DRUG INTERRUPTED ON 10DEC10,
     Route: 048
     Dates: start: 20100120
  3. PLACEBO [Suspect]
     Indication: THROMBOSIS PROPHYLAXIS
     Dosage: DRUG INTERRUPTED ON 10DEC10,
     Route: 048
     Dates: start: 20100120
  4. COZAAR [Concomitant]
     Dates: start: 20100920

REACTIONS (1)
  - DEPRESSION [None]
